FAERS Safety Report 9406206 (Version 1)
Quarter: 2013Q3

REPORT INFORMATION
  Report Type: Report from Study
  Country: US (occurrence: US)
  Receive Date: 20130717
  Receipt Date: 20130717
  Transmission Date: 20140515
  Serious: Yes (Other)
  Sender: FDA-Public Use
  Company Number: US-ABBOTT-13P-163-1119710-00

PATIENT
  Age: 18 Year
  Sex: Female

DRUGS (4)
  1. HUMIRA [Suspect]
     Indication: JUVENILE IDIOPATHIC ARTHRITIS
     Route: 058
     Dates: start: 201102, end: 201211
  2. HUMIRA [Suspect]
     Dates: start: 201305
  3. HUMIRA [Suspect]
  4. LEFLUNOMIDE [Concomitant]
     Indication: JUVENILE IDIOPATHIC ARTHRITIS

REACTIONS (4)
  - Abortion spontaneous [Unknown]
  - Juvenile idiopathic arthritis [Unknown]
  - Pyrexia [Unknown]
  - Fatigue [Unknown]
